FAERS Safety Report 7011046-1 (Version None)
Quarter: 2010Q3

REPORT INFORMATION
  Report Type: 
  Country: None (occurrence: None)
  Receive Date: 20100923
  Receipt Date: 20081205
  Transmission Date: 20110219
  Serious: No
  Sender: FDA-Public Use
  Company Number: US-WYE-H07091208

PATIENT
  Sex: Female

DRUGS (1)
  1. PREMARIN [Suspect]
     Dosage: .5 G EVERY
     Dates: start: 20081101

REACTIONS (2)
  - NONSPECIFIC REACTION [None]
  - PRODUCT QUALITY ISSUE [None]
